FAERS Safety Report 11608279 (Version 2)
Quarter: 2015Q4

REPORT INFORMATION
  Report Type: Spontaneous
  Country: US (occurrence: US)
  Receive Date: 20151007
  Receipt Date: 20151118
  Transmission Date: 20160304
  Serious: Yes (Other)
  Sender: FDA-Public Use
  Company Number: US-TEVA-595227USA

PATIENT
  Age: 55 Year
  Sex: Female
  Weight: 43 kg

DRUGS (3)
  1. AROMASIN [Suspect]
     Active Substance: EXEMESTANE
     Indication: BREAST CANCER
     Dosage: 25 MILLIGRAM DAILY;
     Route: 048
     Dates: start: 20150826
  2. CLONAZEPAM. [Suspect]
     Active Substance: CLONAZEPAM
     Indication: ANXIETY
     Dosage: .5 MILLIGRAM DAILY;
     Route: 048
  3. ARIMIDEX [Suspect]
     Active Substance: ANASTROZOLE
     Route: 065

REACTIONS (13)
  - Choking [Unknown]
  - Neuralgia [Unknown]
  - Dyspnoea [Unknown]
  - Lip pain [Unknown]
  - Fatigue [Unknown]
  - Feeling cold [Unknown]
  - Nausea [Unknown]
  - Dry mouth [Unknown]
  - Pain in extremity [Unknown]
  - Cold sweat [Unknown]
  - Somnolence [Unknown]
  - Hot flush [Unknown]
  - Stomatitis [Unknown]
